FAERS Safety Report 24112772 (Version 2)
Quarter: 2024Q3

REPORT INFORMATION
  Report Type: Spontaneous
  Country: CH (occurrence: CH)
  Receive Date: 20240719
  Receipt Date: 20240801
  Transmission Date: 20241016
  Serious: Yes (Disabling, Other)
  Sender: GUERBET
  Company Number: CH-GUERBET / GUERBET AG-CH-20240016

PATIENT
  Age: 52 Year
  Sex: Male

DRUGS (2)
  1. DOTAREM [Suspect]
     Active Substance: GADOTERATE MEGLUMINE
     Indication: Magnetic resonance imaging head
     Dates: start: 20240111, end: 20240111
  2. DOTAREM [Suspect]
     Active Substance: GADOTERATE MEGLUMINE
     Indication: Magnetic resonance imaging
     Dates: start: 20240229, end: 20240229

REACTIONS (6)
  - Pain [Unknown]
  - Presbyopia [Unknown]
  - Arthralgia [Unknown]
  - Impaired work ability [Unknown]
  - Paraesthesia [Unknown]
  - Product residue present [Unknown]
